FAERS Safety Report 12399733 (Version 5)
Quarter: 2016Q2

REPORT INFORMATION
  Report Type: Report from Study
  Country: CA (occurrence: CA)
  Receive Date: 20160524
  Receipt Date: 20160615
  Transmission Date: 20160815
  Serious: Yes (Death, Hospitalization)
  Sender: FDA-Public Use
  Company Number: PHHY2014CA010861

PATIENT
  Age: 92 Year
  Sex: Male

DRUGS (2)
  1. METOPROLOL. [Suspect]
     Active Substance: METOPROLOL
     Indication: PRODUCT USED FOR UNKNOWN INDICATION
     Dosage: UNK
     Route: 048
  2. SANDOSTATIN LAR DEPOT [Suspect]
     Active Substance: OCTREOTIDE ACETATE
     Indication: NEUROENDOCRINE CARCINOMA METASTATIC
     Dosage: 60 MG, QMO (EVERY 4 WEEKS)
     Route: 030
     Dates: start: 20131210, end: 20160425

REACTIONS (11)
  - Death [Fatal]
  - Dysstasia [Unknown]
  - Asthenia [Unknown]
  - Feeding disorder [Unknown]
  - Sepsis [Unknown]
  - Disorientation [Unknown]
  - Delirium [Unknown]
  - Malaise [Unknown]
  - Cystitis [Unknown]
  - Urinary tract infection [Unknown]
  - Blood pressure systolic increased [Unknown]

NARRATIVE: CASE EVENT DATE: 20140124
